FAERS Safety Report 18462698 (Version 1)
Quarter: 2020Q4

REPORT INFORMATION
  Report Type: Report from Study
  Country: US (occurrence: US)
  Receive Date: 20201104
  Receipt Date: 20201104
  Transmission Date: 20210114
  Serious: Yes (Death)
  Sender: FDA-Public Use
  Company Number: US-PFIZER INC-2020425485

PATIENT
  Age: 68 Year
  Sex: Male

DRUGS (4)
  1. BACLOFEN. [Suspect]
     Active Substance: BACLOFEN
     Dosage: UNK
  2. BUPIVACAINE HCL [Suspect]
     Active Substance: BUPIVACAINE HYDROCHLORIDE
     Dosage: UNK
  3. HYDROMORPHONE HYDROCHLORIDE. [Suspect]
     Active Substance: HYDROMORPHONE HYDROCHLORIDE
     Dosage: UNK
  4. CLONIDINE. [Suspect]
     Active Substance: CLONIDINE
     Dosage: UNK

REACTIONS (5)
  - Leukocytosis [Fatal]
  - Depressed level of consciousness [Fatal]
  - Acute kidney injury [Fatal]
  - Toxicity to various agents [Fatal]
  - Coma [Fatal]
